FAERS Safety Report 8926739 (Version 1)
Quarter: 2012Q4

REPORT INFORMATION
  Report Type: Report from Study
  Country: JP (occurrence: JP)
  Receive Date: 20121127
  Receipt Date: 20121127
  Transmission Date: 20130627
  Serious: Yes (Hospitalization)
  Sender: FDA-Public Use
  Company Number: JP-VERTEX PHARMACEUTICAL INC.-AE-2012-004557

PATIENT
  Age: 65 Year
  Sex: Female

DRUGS (18)
  1. VX-950 (TELAPREVIR) [Suspect]
     Indication: CHRONIC HEPATITIS C
     Dosage: 1500 mg, qd
     Route: 048
     Dates: start: 20120126, end: 20120214
  2. VX-950 (TELAPREVIR) [Suspect]
     Dosage: 750 mg, qd
     Route: 048
     Dates: start: 20120221, end: 20120307
  3. RIBAVIRIN [Suspect]
     Indication: CHRONIC HEPATITIS C
     Dosage: 800 mg, qd
     Route: 048
     Dates: start: 20120126, end: 20120208
  4. RIBAVIRIN [Suspect]
     Dosage: 400 mg, qd
     Route: 048
     Dates: start: 20120209, end: 20120307
  5. PEGINTRON                          /01543001/ [Suspect]
     Indication: CHRONIC HEPATITIS C
     Dosage: 1.5 ?g/kg, qw
     Route: 058
     Dates: start: 20120126, end: 20120209
  6. PEGINTRON                          /01543001/ [Suspect]
     Dosage: 1.5 ?g/kg, qw
     Route: 058
     Dates: start: 20120223, end: 20120301
  7. DIOVAN [Concomitant]
     Dosage: 80 mg, qd
     Route: 048
  8. CO-DIO [Concomitant]
     Dosage: 1 DF, qd
     Route: 048
  9. NIFEDIPINE CR [Concomitant]
     Dosage: 20 mg, qd
     Route: 048
  10. FAMOTIDINE [Concomitant]
     Dosage: 20 mg, qd
     Route: 048
  11. LOXOPROFEN [Concomitant]
     Dosage: 60 mg, qd
     Route: 048
     Dates: start: 20120126
  12. REBAMIPIDE [Concomitant]
     Dosage: 100 mg, prn
     Route: 048
     Dates: start: 20120126
  13. REBAMIPIDE [Concomitant]
     Dosage: UNK, prn
     Route: 048
     Dates: end: 20120308
  14. PRIMPERAN [Concomitant]
     Dosage: 5 mg, qd
     Route: 048
     Dates: start: 20120128
  15. URSO                               /00465701/ [Concomitant]
     Dosage: 900 mg, qd
     Route: 048
     Dates: start: 20120416
  16. GLYCYRON                           /00466401/ [Concomitant]
     Dosage: 6 DF, qd
     Route: 048
     Dates: start: 20120416
  17. PROHEPARUM [Concomitant]
     Dosage: 6 DF, qd
     Route: 048
     Dates: start: 20120416
  18. JUZENTAIHOTO [Concomitant]
     Dosage: 7.5 g, qd
     Route: 048
     Dates: start: 20120711

REACTIONS (3)
  - Deafness [Recovered/Resolved]
  - Dizziness [Recovered/Resolved]
  - Decreased appetite [Recovered/Resolved]
